FAERS Safety Report 9282687 (Version 1)
Quarter: 2013Q2

REPORT INFORMATION
  Report Type: Spontaneous
  Country: AU (occurrence: AU)
  Receive Date: 20130510
  Receipt Date: 20130510
  Transmission Date: 20140414
  Serious: Yes (Other)
  Sender: FDA-Public Use
  Company Number: PHHY2013AU044695

PATIENT
  Sex: Female

DRUGS (6)
  1. ZOMETA [Suspect]
     Dosage: UNK UKN, UNK
     Dates: start: 201206
  2. ZOMETA [Suspect]
     Dosage: UNK UKN, UNK
     Dates: start: 201207
  3. ZOMETA [Suspect]
     Dosage: UNK UKN, UNK
     Dates: start: 20130318
  4. ZOMETA [Suspect]
     Dosage: UNK UKN, UNK
     Dates: start: 20130415
  5. SALINE [Concomitant]
     Dosage: UNK UKN, UNK
  6. THALIDOMIDE [Concomitant]
     Dosage: UNK UKN, UNK

REACTIONS (11)
  - Arthritis [Unknown]
  - Viral infection [Unknown]
  - Bursitis [Unknown]
  - Joint swelling [Unknown]
  - Gait disturbance [Unknown]
  - Musculoskeletal stiffness [Unknown]
  - Neck pain [Unknown]
  - Myalgia [Unknown]
  - Arthralgia [Unknown]
  - Bone pain [Unknown]
  - Nausea [Unknown]
